FAERS Safety Report 5406071-8 (Version None)
Quarter: 2007Q3

REPORT INFORMATION
  Report Type: 
  Country: None (occurrence: None)
  Receive Date: 20070806
  Receipt Date: 20070727
  Transmission Date: 20080115
  Serious: Yes (Life-Threatening)
  Sender: FDA-Public Use
  Company Number: B0482073A

PATIENT
  Age: 20 Year
  Sex: Female

DRUGS (6)
  1. LITHIUM CARBONATE [Suspect]
     Dosage: 800MG UNKNOWN
     Route: 048
     Dates: start: 20070320, end: 20070604
  2. ZAPONEX [Suspect]
     Indication: SCHIZOPHRENIA
     Dosage: 300MG UNKNOWN
     Route: 048
     Dates: start: 20070423, end: 20070604
  3. HALOPERIDOL [Concomitant]
     Route: 048
     Dates: end: 20070320
  4. ACETAMINOPHEN [Concomitant]
     Indication: HEADACHE
     Dosage: 4MG AS REQUIRED
     Route: 048
     Dates: start: 20070328
  5. PROCYCLIDINE HYDROCHLORIDE 2MG TAB [Concomitant]
     Route: 048
     Dates: start: 20070328
  6. ZOPICLONE [Concomitant]
     Indication: INSOMNIA
     Route: 048
     Dates: start: 20070323

REACTIONS (3)
  - ADVERSE DRUG REACTION [None]
  - ANGIOEDEMA [None]
  - RASH [None]
